FAERS Safety Report 4973383-1 (Version None)
Quarter: 2006Q2

REPORT INFORMATION
  Report Type: 
  Country: None (occurrence: None)
  Receive Date: 20060414
  Receipt Date: 20060125
  Transmission Date: 20061013
  Serious: Yes (Death, Hospitalization)
  Sender: FDA-Public Use
  Company Number: US-MERCK-0601USA03032

PATIENT
  Age: 74 Year
  Sex: Female
  Weight: 77 kg

DRUGS (5)
  1. VIOXX [Suspect]
     Indication: ARTHRITIS
     Route: 048
     Dates: start: 19990601, end: 20030901
  2. ACIPHEX [Concomitant]
     Route: 065
  3. COUMADIN [Concomitant]
     Route: 065
  4. CLONIDINE [Concomitant]
     Route: 065
  5. VICODIN [Concomitant]
     Route: 065

REACTIONS (4)
  - CEREBROVASCULAR ACCIDENT [None]
  - HYPERTENSION [None]
  - PULMONARY EMBOLISM [None]
  - SYNCOPE [None]
